FAERS Safety Report 9613072 (Version 1)
Quarter: 2013Q4

REPORT INFORMATION
  Report Type: Report from Study
  Country: NL (occurrence: NL)
  Receive Date: 20131010
  Receipt Date: 20131010
  Transmission Date: 20140711
  Serious: Yes (Hospitalization)
  Sender: FDA-Public Use
  Company Number: PHHY2013NL113875

PATIENT
  Sex: Female

DRUGS (2)
  1. ACLASTA [Suspect]
     Indication: OSTEOPOROSIS
     Dosage: 5 MG ONCE PER 52 WEEKS
     Route: 042
     Dates: start: 20111011
  2. ACLASTA [Suspect]
     Dosage: 5 MG ONCE PER 52 WEEKS
     Route: 042
     Dates: start: 20121019

REACTIONS (1)
  - Lung disorder [Not Recovered/Not Resolved]
